FAERS Safety Report 14672166 (Version 2)
Quarter: 2018Q2

REPORT INFORMATION
  Report Type: Spontaneous
  Country: US (occurrence: US)
  Receive Date: 20180323
  Receipt Date: 20180504
  Transmission Date: 20180711
  Serious: No
  Sender: FDA-Public Use
  Company Number: US-ASTRAZENECA-2018SE24126

PATIENT
  Sex: Female
  Weight: 68 kg

DRUGS (5)
  1. MAXAIR [Concomitant]
     Active Substance: PIRBUTEROL ACETATE
     Indication: ASTHMA
  2. SPIRIVA [Concomitant]
     Active Substance: TIOTROPIUM BROMIDE MONOHYDRATE
     Route: 055
  3. MAXAIR [Concomitant]
     Active Substance: PIRBUTEROL ACETATE
     Indication: CHRONIC OBSTRUCTIVE PULMONARY DISEASE
  4. MAXAIR [Concomitant]
     Active Substance: PIRBUTEROL ACETATE
     Indication: EMPHYSEMA
  5. TUDORZA PRESSAIR [Suspect]
     Active Substance: ACLIDINIUM BROMIDE
     Indication: CHRONIC OBSTRUCTIVE PULMONARY DISEASE
     Route: 055

REACTIONS (14)
  - Feeling abnormal [Unknown]
  - Hypoacusis [Unknown]
  - Circumstance or information capable of leading to device use error [Unknown]
  - Device malfunction [Unknown]
  - Dyspnoea [Unknown]
  - Intentional device misuse [Unknown]
  - Device failure [Unknown]
  - Body height decreased [Unknown]
  - Headache [Unknown]
  - Gait disturbance [Unknown]
  - Loss of personal independence in daily activities [Unknown]
  - Musculoskeletal discomfort [Unknown]
  - Tension headache [Unknown]
  - Dyspnoea [Not Recovered/Not Resolved]
